FAERS Safety Report 7516239-2 (Version None)
Quarter: 2011Q2

REPORT INFORMATION
  Report Type: 
  Country: None (occurrence: None)
  Receive Date: 20110426
  Receipt Date: 20110311
  Transmission Date: 20111010
  Serious: Yes (Other)
  Sender: FDA-Public Use
  Company Number: M-11-006

PATIENT
  Sex: Female

DRUGS (2)
  1. COGENTIN [Suspect]
     Dosage: ORAL (047)
     Route: 048
  2. FOCALIN XR [Concomitant]

REACTIONS (7)
  - HEADACHE [None]
  - DRY MOUTH [None]
  - SWELLING [None]
  - MUSCLE TWITCHING [None]
  - EATING DISORDER [None]
  - LIP SWELLING [None]
  - DYSPEPSIA [None]
